FAERS Safety Report 21394647 (Version 2)
Quarter: 2023Q2

REPORT INFORMATION
  Report Type: Report from Study
  Country: US (occurrence: US)
  Receive Date: 20220930
  Receipt Date: 20230511
  Transmission Date: 20230721
  Serious: No
  Sender: FDA-Public Use
  Company Number: US-ABBVIE-22K-163-4527696-00

PATIENT
  Sex: Male
  Weight: 104.32 kg

DRUGS (5)
  1. RINVOQ [Suspect]
     Active Substance: UPADACITINIB
     Indication: Osteoarthritis
     Dosage: FORM STRENGTH: 15 MILLIGRAM
     Route: 048
  2. RINVOQ [Suspect]
     Active Substance: UPADACITINIB
     Indication: Osteoarthritis
     Dosage: FORM STRENGTH: 15 MILLIGRAM
     Route: 048
     Dates: start: 20210928
  3. JANSSEN COVID-19 VACCINE [Concomitant]
     Active Substance: AD26.COV2.S
     Indication: COVID-19 immunisation
     Dosage: TIME INTERVAL: 1 TOTAL: FIRST DOSE?1 IN ONCE
     Route: 030
     Dates: start: 20220401, end: 20220401
  4. JANSSEN COVID-19 VACCINE [Concomitant]
     Active Substance: AD26.COV2.S
     Indication: COVID-19 immunisation
     Dosage: TIME INTERVAL: 1 TOTAL: SECOND DOSE?FIRST ADMIN DATE AND LAST ADMIN DATE 2021?1 IN ONCE
     Route: 030
  5. JANSSEN COVID-19 VACCINE [Concomitant]
     Active Substance: AD26.COV2.S
     Indication: COVID-19 immunisation
     Dosage: TIME INTERVAL: 1 TOTAL: BOOSTER DOSE?FIRST ADMIN DATE AND LAST ADMIN DATE 2021?1 IN ONCE
     Route: 030

REACTIONS (10)
  - Joint stiffness [Not Recovered/Not Resolved]
  - Trigger finger [Unknown]
  - Drug ineffective [Not Recovered/Not Resolved]
  - Off label use [Not Recovered/Not Resolved]
  - Joint swelling [Not Recovered/Not Resolved]
  - Pain [Not Recovered/Not Resolved]
  - Arthropathy [Unknown]
  - Arthralgia [Unknown]
  - Mobility decreased [Unknown]
  - Grip strength decreased [Unknown]
